FAERS Safety Report 20088915 (Version 1)
Quarter: 2021Q4

REPORT INFORMATION
  Report Type: Spontaneous
  Country: US (occurrence: None)
  Receive Date: 20211119
  Receipt Date: 20211119
  Transmission Date: 20220303
  Serious: Yes (Hospitalization, Other)
  Sender: FDA-Public Use
  Company Number: US-MLMSERVICE-20211101-3190761-1

PATIENT
  Age: 61 Year
  Sex: Male

DRUGS (4)
  1. COLCHICINE [Interacting]
     Active Substance: COLCHICINE
     Indication: Pleuritic pain
     Route: 065
  2. COLCHICINE [Interacting]
     Active Substance: COLCHICINE
     Dosage: LOADING DOSE
     Route: 065
  3. CARBAMAZEPINE [Interacting]
     Active Substance: CARBAMAZEPINE
     Indication: Seizure
     Dosage: UNKNOWN
     Route: 065
  4. IBUPROFEN [Concomitant]
     Active Substance: IBUPROFEN
     Indication: Pleuritic pain
     Route: 065

REACTIONS (4)
  - Drug level decreased [Unknown]
  - Treatment failure [Recovered/Resolved]
  - Nausea [Unknown]
  - Drug interaction [Unknown]
